FAERS Safety Report 7991131-8 (Version None)
Quarter: 2011Q4

REPORT INFORMATION
  Report Type: 
  Country: None (occurrence: None)
  Receive Date: 20111219
  Receipt Date: 20111208
  Transmission Date: 20120403
  Serious: Yes (Other)
  Sender: FDA-Public Use
  Company Number: US-JNJFOC-20111203985

PATIENT
  Sex: Female
  Weight: 57.15 kg

DRUGS (3)
  1. DILAUDID [Concomitant]
     Indication: PAIN
     Route: 048
     Dates: start: 20070101
  2. REMICADE [Suspect]
     Indication: RHEUMATOID ARTHRITIS
     Route: 042
     Dates: start: 20110801, end: 20111101
  3. DIOVAN [Concomitant]
     Indication: CARDIAC DISORDER
     Route: 048

REACTIONS (3)
  - DRUG INEFFECTIVE [None]
  - SYSTEMIC LUPUS ERYTHEMATOSUS [None]
  - ABDOMINAL DISCOMFORT [None]
